FAERS Safety Report 24603548 (Version 1)
Quarter: 2024Q4

REPORT INFORMATION
  Report Type: Report from Study
  Country: US (occurrence: US)
  Receive Date: 20241111
  Receipt Date: 20241111
  Transmission Date: 20250115
  Serious: Yes (Other)
  Sender: ABBVIE
  Company Number: US-ABBVIE-5994527

PATIENT
  Age: 61 Year
  Sex: Female

DRUGS (1)
  1. HUMIRA [Suspect]
     Active Substance: ADALIMUMAB
     Indication: Rheumatoid arthritis
     Route: 058
     Dates: start: 20170913

REACTIONS (8)
  - Arterial occlusive disease [Unknown]
  - Chronic obstructive pulmonary disease [Unknown]
  - Hernia [Unknown]
  - Hypertension [Unknown]
  - Chills [Unknown]
  - Suspected COVID-19 [Unknown]
  - Pneumonia [Unknown]
  - Cardiac disorder [Unknown]

NARRATIVE: CASE EVENT DATE: 20241001
